FAERS Safety Report 5794090-1 (Version None)
Quarter: 2008Q2

REPORT INFORMATION
  Report Type: 
  Country: None (occurrence: None)
  Receive Date: 20080625
  Receipt Date: 20080610
  Transmission Date: 20081010
  Serious: Yes (Death)
  Sender: FDA-Public Use
  Company Number: 08-200

PATIENT
  Age: 53 Year
  Sex: Male

DRUGS (9)
  1. FAZACLO ODT [Suspect]
     Indication: SCHIZOPHRENIA
     Dosage: 600 MG DAILY PO
     Route: 048
     Dates: start: 20070802, end: 20080515
  2. RISPERDAL [Concomitant]
  3. ZOLOFT [Concomitant]
  4. COGENTIN [Concomitant]
  5. ZOCOR [Concomitant]
  6. SYNTHROID [Concomitant]
  7. AMITIZA [Concomitant]
  8. MULTIVITAMIN WITH IRON [Concomitant]
  9. METAMUCIL [Concomitant]

REACTIONS (1)
  - CHOKING [None]
